FAERS Safety Report 6157464-5 (Version None)
Quarter: 2009Q2

REPORT INFORMATION
  Report Type: 
  Country: None (occurrence: None)
  Receive Date: 20090416
  Receipt Date: 20090407
  Transmission Date: 20091009
  Serious: Yes (Hospitalization)
  Sender: FDA-Public Use
  Company Number: PHHO2009JP04722

PATIENT
  Sex: Male
  Weight: 83 kg

DRUGS (8)
  1. ALISKIREN ALI+TAB+CVR [Suspect]
     Indication: CARDIOVASCULAR DISORDER
     Dosage: DOUBLE BLIND
     Route: 048
     Dates: start: 20090121
  2. DIOVAN [Concomitant]
     Indication: HYPERTENSION
     Dosage: UNK
     Route: 048
     Dates: start: 20071121
  3. HUMALOG MIX [Concomitant]
     Dosage: UNK
     Dates: start: 20080123
  4. HUMALOG [Concomitant]
     Dosage: UNK
     Dates: start: 20080416
  5. LIPITOR [Concomitant]
     Dosage: UNK
     Dates: start: 20041117
  6. CYANOCOBALAMIN [Concomitant]
     Dosage: UNK
     Dates: start: 20061129
  7. HYALEIN [Concomitant]
  8. MYDRIN P [Concomitant]
     Dosage: UNK
     Dates: start: 20081217

REACTIONS (1)
  - DIABETIC RETINOPATHY [None]
